FAERS Safety Report 9170257 (Version 1)
Quarter: 2013Q1

REPORT INFORMATION
  Report Type: Spontaneous
  Country: US (occurrence: US)
  Receive Date: 20130319
  Receipt Date: 20130319
  Transmission Date: 20140127
  Serious: Yes (Hospitalization)
  Sender: FDA-Public Use
  Company Number: US-BAYER-2013-030871

PATIENT
  Age: 19 Year
  Sex: 0
  Weight: 54.42 kg

DRUGS (8)
  1. YAZ [Suspect]
  2. YASMIN [Suspect]
     Indication: DYSMENORRHOEA
  3. YASMIN [Suspect]
     Indication: POLYCYSTIC OVARIES
  4. YASMIN [Suspect]
     Indication: CONTRACEPTION
  5. PERCOCET [Concomitant]
  6. IBUPROFEN [Concomitant]
  7. AMOXIL [Concomitant]
  8. TYLENOL #7 [Concomitant]

REACTIONS (1)
  - Deep vein thrombosis [None]
